FAERS Safety Report 20809562 (Version 3)
Quarter: 2022Q2

REPORT INFORMATION
  Report Type: Spontaneous
  Country: JP (occurrence: JP)
  Receive Date: 20220510
  Receipt Date: 20220602
  Transmission Date: 20220721
  Serious: Yes (Other)
  Sender: FDA-Public Use
  Company Number: JP-ELI_LILLY_AND_COMPANY-JP202205000306

PATIENT
  Age: 52 Year
  Sex: Female
  Weight: 46 kg

DRUGS (2)
  1. VERZENIO [Suspect]
     Active Substance: ABEMACICLIB
     Indication: Breast cancer stage III
     Dosage: 150 MG, BID
     Route: 048
     Dates: start: 20220418, end: 20220426
  2. FEMARA [Concomitant]
     Active Substance: LETROZOLE
     Indication: Breast cancer stage III
     Dosage: 2.5 MG, DAILY
     Route: 048
     Dates: start: 20210914

REACTIONS (3)
  - Toxic skin eruption [Recovering/Resolving]
  - Hepatic function abnormal [Recovering/Resolving]
  - Diarrhoea [Unknown]

NARRATIVE: CASE EVENT DATE: 20220424
